FAERS Safety Report 8121311-2 (Version None)
Quarter: 2012Q1

REPORT INFORMATION
  Report Type: 
  Country: None (occurrence: None)
  Receive Date: 20120208
  Receipt Date: 20120206
  Transmission Date: 20120608
  Serious: Yes (Other)
  Sender: FDA-Public Use
  Company Number: US-BAYER-2012-012286

PATIENT
  Age: 76 Year
  Sex: Female
  Weight: 55 kg

DRUGS (5)
  1. ALEVE (CAPLET) [Suspect]
     Dosage: 2 UNITS, ONCE
     Route: 048
     Dates: start: 20120201, end: 20120204
  2. AMLODIPINE [Concomitant]
  3. OXYBUTNIN [Concomitant]
  4. FOLIC ACID [Concomitant]
  5. LEVOTHYROXINE SODIUM [Concomitant]

REACTIONS (5)
  - ASTHENIA [None]
  - CHROMATURIA [None]
  - BALANCE DISORDER [None]
  - FALL [None]
  - FATIGUE [None]
